FAERS Safety Report 25619182 (Version 2)
Quarter: 2025Q3

REPORT INFORMATION
  Report Type: Spontaneous
  Country: US (occurrence: US)
  Receive Date: 20250729
  Receipt Date: 20250908
  Transmission Date: 20251020
  Serious: No
  Sender: EISAI
  Company Number: US-Eisai-EC-2025-192896

PATIENT
  Age: 86 Year
  Sex: Female
  Weight: 60 kg

DRUGS (17)
  1. LENVIMA [Suspect]
     Active Substance: LENVATINIB
     Indication: Endometrial cancer recurrent
     Dosage: DOSE AND FREQUENCY UNKNOWN
     Route: 048
     Dates: start: 20240724, end: 20250603
  2. LENVIMA [Suspect]
     Active Substance: LENVATINIB
     Indication: Cervix carcinoma
     Route: 048
  3. KEYTRUDA [Suspect]
     Active Substance: PEMBROLIZUMAB
     Indication: Endometrial cancer recurrent
     Dosage: DOSE AND FREQUENCY UNKNOWN
     Dates: start: 20240530, end: 2025
  4. KEYTRUDA [Suspect]
     Active Substance: PEMBROLIZUMAB
     Indication: Cervix carcinoma
     Dosage: DOSE AND FREQUENCY UNKNOWN
     Dates: start: 20250422, end: 20250603
  5. KEYTRUDA [Suspect]
     Active Substance: PEMBROLIZUMAB
     Dosage: DOSE AND FREQUENCY UNKNOWN
     Dates: start: 20250723
  6. ASPIRIN [Concomitant]
     Active Substance: ASPIRIN
  7. BISACODYL [Concomitant]
     Active Substance: BISACODYL
  8. CELECOXIB [Concomitant]
     Active Substance: CELECOXIB
  9. CHOLECALCIFEROL [Concomitant]
     Active Substance: CHOLECALCIFEROL
  10. CHONDROITIN SULFATE (BOVINE)\GLUCOSAMINE SULFATE [Concomitant]
     Active Substance: CHONDROITIN SULFATE (BOVINE)\GLUCOSAMINE SULFATE
  11. LUTEIN [Concomitant]
     Active Substance: LUTEIN
  12. LYSINE [Concomitant]
     Active Substance: LYSINE
  13. METHYLCELLULOSES [Concomitant]
     Active Substance: METHYLCELLULOSES
  14. MULTIPLE VITAMINS AND MINERALS [Concomitant]
  15. PROBIOTICS NOS [Concomitant]
     Active Substance: PROBIOTICS NOS
  16. SENNA [Concomitant]
     Active Substance: SENNOSIDES
  17. TRIAMCINOLONE [Concomitant]
     Active Substance: TRIAMCINOLONE

REACTIONS (2)
  - Herpes zoster [Recovered/Resolved]
  - Mucosal inflammation [Recovered/Resolved]

NARRATIVE: CASE EVENT DATE: 20241101
